FAERS Safety Report 4505784-X (Version None)
Quarter: 2004Q4

REPORT INFORMATION
  Report Type: 
  Country: None (occurrence: None)
  Receive Date: 20041025
  Receipt Date: 20040416
  Transmission Date: 20050328
  Serious: Yes (Hospitalization)
  Sender: FDA-Public Use
  Company Number: US-JNJFOC-20040103391

PATIENT
  Age: 23 Year
  Weight: 56.246 kg

DRUGS (6)
  1. REMICADE [Suspect]
     Indication: CROHN'S DISEASE
     Dosage: 5 MG/KG, 1 IN 8 WEEK; INTRAVENOUS
     Route: 042
     Dates: start: 20031004, end: 20031004
  2. TYLENOL [Concomitant]
  3. BENADRYL [Concomitant]
  4. PURINETHOL [Concomitant]
  5. LEVAQUIN [Concomitant]
  6. ORTHOTRICYCLIN (CILEST) [Concomitant]

REACTIONS (2)
  - PNEUMOTHORAX [None]
  - PULMONARY FIBROSIS [None]
